FAERS Safety Report 9387872 (Version 3)
Quarter: 2013Q3

REPORT INFORMATION
  Report Type: Spontaneous
  Country: US (occurrence: None)
  Receive Date: 20130701
  Receipt Date: 20130917
  Transmission Date: 20140515
  Serious: Yes (Hospitalization, Other)
  Sender: FDA-Public Use
  Company Number: VAL_02603_2013

PATIENT
  Age: 79 Year
  Sex: Female

DRUGS (4)
  1. METOPROLOL [Suspect]
     Indication: HYPERTENSION
     Route: 048
     Dates: start: 2011, end: 20130612
  2. LOW DOSE AH5N1C VS HIGH DOSE AH5N1C IN ELDERLY SUBJECTS (CODE NOT BROKEN) [Suspect]
     Indication: IMMUNISATION
     Route: 030
     Dates: start: 20130214, end: 2013
  3. HYDROCHLOROTHIAZIDE [Concomitant]
  4. SERTRALINE [Concomitant]

REACTIONS (5)
  - Dizziness [None]
  - Fall [None]
  - Back injury [None]
  - Back pain [None]
  - Bradycardia [None]
